FAERS Safety Report 7995388-9 (Version None)
Quarter: 2011Q4

REPORT INFORMATION
  Report Type: 
  Country: None (occurrence: None)
  Receive Date: 20111220
  Receipt Date: 20111207
  Transmission Date: 20120403
  Serious: Yes (Other)
  Sender: FDA-Public Use
  Company Number: NL-ROCHE-1021149

PATIENT

DRUGS (8)
  1. MABTHERA [Suspect]
     Indication: MANTLE CELL LYMPHOMA
  2. FLUDARABINE PHOSPHATE [Suspect]
     Indication: MANTLE CELL LYMPHOMA
  3. CYCLOPHOSPHAMIDE [Suspect]
     Indication: MANTLE CELL LYMPHOMA
  4. DOXORUBICIN HCL [Suspect]
     Indication: MANTLE CELL LYMPHOMA
  5. INTERFERON ALFA [Suspect]
     Indication: MANTLE CELL LYMPHOMA
  6. PEGYLATED INTERFERON NOS [Suspect]
     Indication: MANTLE CELL LYMPHOMA
  7. PREDNISONE TAB [Suspect]
     Indication: MANTLE CELL LYMPHOMA
  8. VINCRISTINE [Suspect]
     Indication: MANTLE CELL LYMPHOMA

REACTIONS (4)
  - THROMBOCYTOPENIA [None]
  - INFECTION [None]
  - LEUKOPENIA [None]
  - FEBRILE NEUTROPENIA [None]
